FAERS Safety Report 23780074 (Version 4)
Quarter: 2024Q3

REPORT INFORMATION
  Report Type: Report from Study
  Country: LT (occurrence: LT)
  Receive Date: 20240424
  Receipt Date: 20240817
  Transmission Date: 20241016
  Serious: Yes (Hospitalization)
  Sender: VERITY PHARMACEUTICALS
  Company Number: LT-VER-202400003

PATIENT
  Age: 75 Year
  Sex: Male
  Weight: 115 kg

DRUGS (1)
  1. TRIPTORELIN [Suspect]
     Active Substance: TRIPTORELIN
     Indication: Prostate cancer
     Dosage: POWDER AND SOLVENT FOR SUSPENSION FOR INJECTION
     Route: 058
     Dates: start: 20230711, end: 20230711

REACTIONS (1)
  - Foot fracture [Recovered/Resolved with Sequelae]

NARRATIVE: CASE EVENT DATE: 20230806
